FAERS Safety Report 9702821 (Version 2)
Quarter: 2013Q4

REPORT INFORMATION
  Report Type: Spontaneous
  Country: FR (occurrence: FR)
  Receive Date: 20131121
  Receipt Date: 20131216
  Transmission Date: 20140711
  Serious: Yes (Hospitalization)
  Sender: FDA-Public Use
  Company Number: FR-GLAXOSMITHKLINE-B0944816A

PATIENT
  Age: 68 Year
  Sex: Female

DRUGS (3)
  1. VALACICLOVIR [Suspect]
     Indication: HERPES ZOSTER
     Dosage: 1000MG THREE TIMES PER DAY
     Route: 048
     Dates: start: 20131108
  2. DAFALGAN [Concomitant]
  3. BISEPTINE [Concomitant]

REACTIONS (4)
  - Syncope [Recovered/Resolved]
  - Tooth fracture [Recovered/Resolved]
  - Palpitations [Recovered/Resolved]
  - Tonic clonic movements [Recovered/Resolved]
